FAERS Safety Report 10725456 (Version 3)
Quarter: 2015Q3

REPORT INFORMATION
  Report Type: Spontaneous
  Country: US (occurrence: US)
  Receive Date: 20150121
  Receipt Date: 20150922
  Transmission Date: 20151125
  Serious: No
  Sender: FDA-Public Use
  Company Number: US-GLAXOSMITHKLINE-US2015GSK005861

PATIENT
  Sex: Female

DRUGS (1)
  1. TARGET NICOTINE [Suspect]
     Active Substance: NICOTINE
     Indication: PRODUCT USED FOR UNKNOWN INDICATION
     Dosage: UNK
     Route: 062

REACTIONS (5)
  - Rash pruritic [Recovering/Resolving]
  - Application site pain [Recovering/Resolving]
  - Ill-defined disorder [Recovering/Resolving]
  - Malaise [Unknown]
  - Dizziness [Unknown]
